FAERS Safety Report 21431371 (Version 2)
Quarter: 2022Q4

REPORT INFORMATION
  Report Type: Report from Study
  Country: US (occurrence: US)
  Receive Date: 20221009
  Receipt Date: 20221215
  Transmission Date: 20230113
  Serious: Yes (Other)
  Sender: FDA-Public Use
  Company Number: US-ABBVIE-4139148

PATIENT
  Sex: Male

DRUGS (4)
  1. SKYRIZI [Suspect]
     Active Substance: RISANKIZUMAB-RZAA
     Indication: Psoriasis
     Route: 058
  2. TYLENOL [Concomitant]
     Active Substance: ACETAMINOPHEN
     Indication: Product used for unknown indication
  3. Moderna [Concomitant]
     Indication: COVID-19 immunisation
     Dosage: COVID VACCINE?FREQUENCY 1 IN ONCE
     Route: 030
  4. Moderna [Concomitant]
     Indication: COVID-19 immunisation
     Dosage: BOOSTER VACCINE?FREQUENCY 1 IN ONCE

REACTIONS (2)
  - Medical device implantation [Not Recovered/Not Resolved]
  - Arthralgia [Not Recovered/Not Resolved]
